FAERS Safety Report 11791601 (Version 1)
Quarter: 2015Q4

REPORT INFORMATION
  Report Type: Spontaneous
  Country: FR (occurrence: FR)
  Receive Date: 20151201
  Receipt Date: 20151201
  Transmission Date: 20160305
  Serious: Yes (Hospitalization)
  Sender: FDA-Public Use
  Company Number: FR-EMD SERONO-8054323

PATIENT
  Age: 21 Year
  Sex: Female

DRUGS (4)
  1. PUREGON                            /01348901/ [Suspect]
     Active Substance: FOLLITROPIN
     Indication: PRODUCT USED FOR UNKNOWN INDICATION
     Route: 058
     Dates: start: 20150904, end: 20150911
  2. PUREGON                            /01348901/ [Suspect]
     Active Substance: FOLLITROPIN
     Route: 058
     Dates: start: 20150912, end: 20150913
  3. CHORIONIC GONADOTROPIN [Suspect]
     Active Substance: CHORIOGONADOTROPIN ALFA
     Indication: PRODUCT USED FOR UNKNOWN INDICATION
     Dosage: 10,000 (INTERNATIONAL UNITS)
     Route: 030
     Dates: start: 20150914, end: 20150914
  4. CETROTIDE [Suspect]
     Active Substance: CETRORELIX ACETATE
     Indication: PRODUCT USED FOR UNKNOWN INDICATION
     Dosage: POWDER AND SOLVENT FOR SOLUTION FOR INJECTION
     Route: 058
     Dates: start: 20150910, end: 20150914

REACTIONS (2)
  - Anaemia [None]
  - Peritoneal haemorrhage [Recovered/Resolved]

NARRATIVE: CASE EVENT DATE: 20150916
